FAERS Safety Report 6610755-3 (Version None)
Quarter: 2010Q1

REPORT INFORMATION
  Report Type: 
  Country: None (occurrence: None)
  Receive Date: 20100302
  Receipt Date: 20100222
  Transmission Date: 20100710
  Serious: Yes (Other)
  Sender: FDA-Public Use
  Company Number: B0629702A

PATIENT
  Sex: Male

DRUGS (8)
  1. REQUIP [Suspect]
     Indication: PARKINSON'S DISEASE
     Dosage: .25MG THREE TIMES PER DAY
     Route: 048
     Dates: start: 20091215, end: 20100124
  2. MENESIT [Concomitant]
     Indication: PARKINSON'S DISEASE
     Dates: start: 20100125
  3. LANDSEN [Concomitant]
     Dosage: .5MG PER DAY
     Route: 048
     Dates: start: 20091215, end: 20100114
  4. SILODOSIN [Concomitant]
     Route: 048
  5. EVIPROSTAT [Concomitant]
     Route: 048
  6. BEZATOL SR [Concomitant]
     Route: 048
  7. ASPIRIN [Concomitant]
     Route: 048
  8. COMTAN [Concomitant]
     Dates: start: 20100125

REACTIONS (1)
  - DISORIENTATION [None]
